FAERS Safety Report 6098982-8 (Version None)
Quarter: 2009Q1

REPORT INFORMATION
  Report Type: 
  Country: None (occurrence: None)
  Receive Date: 20090302
  Receipt Date: 20090218
  Transmission Date: 20090719
  Serious: Yes (Other)
  Sender: FDA-Public Use
  Company Number: BR-PFIZER INC-2009173306

PATIENT

DRUGS (1)
  1. CHAMPIX [Suspect]
     Dosage: UNKNOWN
     Route: 048

REACTIONS (1)
  - DIPLOPIA [None]
